FAERS Safety Report 24116914 (Version 2)
Quarter: 2024Q4

REPORT INFORMATION
  Report Type: Spontaneous
  Country: IN (occurrence: IN)
  Receive Date: 20240722
  Receipt Date: 20241009
  Transmission Date: 20250114
  Serious: Yes (Death)
  Sender: ROCHE
  Company Number: IN-ROCHE-3545085

PATIENT
  Age: 20 Year
  Sex: Male

DRUGS (1)
  1. POLIVY [Suspect]
     Active Substance: POLATUZUMAB VEDOTIN-PIIQ
     Indication: Non-Hodgkin^s lymphoma
     Route: 042
     Dates: start: 20240409

REACTIONS (3)
  - Haematological infection [Fatal]
  - Pyrexia [Unknown]
  - Off label use [Unknown]
